FAERS Safety Report 4980282-8 (Version None)
Quarter: 2006Q2

REPORT INFORMATION
  Report Type: 
  Country: None (occurrence: None)
  Receive Date: 20060420
  Receipt Date: 20060420
  Transmission Date: 20061013
  Serious: No
  Sender: FDA-Public Use
  Company Number: None

PATIENT
  Age: 46 Year
  Sex: Male
  Weight: 65.8 kg

DRUGS (7)
  1. CIPROFLOXACIN [Suspect]
  2. CIPROFLOXACIN HCL [Concomitant]
  3. KETOROLAC TROMETHAMINE [Concomitant]
  4. METRONIDAZOLE [Concomitant]
  5. CEPHALEXIN [Concomitant]
  6. DIPHENHYDRAMINE HCL [Concomitant]
  7. METHYLPREDNISOLONE 4MG TAB [Concomitant]

REACTIONS (1)
  - URTICARIA [None]
